FAERS Safety Report 4950135-X (Version None)
Quarter: 2006Q1

REPORT INFORMATION
  Report Type: 
  Country: None (occurrence: None)
  Receive Date: 20060316
  Receipt Date: 20060306
  Transmission Date: 20060701
  Serious: Yes (Other)
  Sender: FDA-Public Use
  Company Number: BR-2005-002484

PATIENT
  Age: 47 Year
  Sex: Female

DRUGS (4)
  1. BETAFERON (INTERFERON BETA-1B) BETAFERON (INTERFERON BETA-1B) INJECTIO [Suspect]
     Indication: MULTIPLE SCLEROSIS
     Dosage: 8 MIU, EVERY 2D, SUBCUTANEOUS
     Route: 058
     Dates: start: 20030101
  2. PROPRANOLOL [Concomitant]
  3. MINIPRESS [Concomitant]
  4. CAPOTEN [Concomitant]

REACTIONS (7)
  - CHOKING [None]
  - DISEASE RECURRENCE [None]
  - INJECTION SITE NECROSIS [None]
  - INJECTION SITE NODULE [None]
  - ISCHAEMIC STROKE [None]
  - MUSCLE SPASTICITY [None]
  - URINARY TRACT INFECTION [None]
